FAERS Safety Report 23740509 (Version 3)
Quarter: 2024Q3

REPORT INFORMATION
  Report Type: Spontaneous
  Country: JP (occurrence: JP)
  Receive Date: 20240415
  Receipt Date: 20240731
  Transmission Date: 20241017
  Serious: Yes (Death, Other)
  Sender: GILEAD
  Company Number: JP-GILEAD-2024-0665914

PATIENT
  Age: 87 Year
  Sex: Male

DRUGS (8)
  1. VEKLURY [Suspect]
     Active Substance: REMDESIVIR
     Indication: COVID-19
     Dosage: 200 MG, QD
     Route: 041
     Dates: start: 20221215, end: 20221215
  2. VEKLURY [Suspect]
     Active Substance: REMDESIVIR
     Dosage: 100 MG, QD
     Route: 041
     Dates: start: 20221216, end: 20221217
  3. SOLITA T NO. 1 [Concomitant]
     Indication: Fluid replacement
     Dosage: 500 ML, QD
     Route: 041
     Dates: start: 20221215, end: 20221220
  4. SOLITA-T 3G [Concomitant]
     Indication: Fluid replacement
     Dosage: 500 ML, QD
     Route: 041
     Dates: start: 20221216, end: 20221219
  5. DEXTROSE [Concomitant]
     Active Substance: DEXTROSE\DEXTROSE MONOHYDRATE
     Indication: Fluid replacement
     Dosage: 40 ML, QD
     Route: 041
     Dates: start: 20221216, end: 20221220
  6. BISOLVON [Concomitant]
     Active Substance: BROMHEXINE HYDROCHLORIDE
     Indication: Productive cough
     Dosage: 4 MG, BID
     Route: 042
     Dates: start: 20221216, end: 20221219
  7. SODIUM CHLORIDE [Concomitant]
     Active Substance: SODIUM CHLORIDE
     Dosage: 100 ML, QD
     Route: 041
     Dates: start: 20221217, end: 20221219
  8. CEFTRIAXONE SODIUM [Concomitant]
     Active Substance: CEFTRIAXONE SODIUM
     Indication: Pneumonia
     Dosage: 1 G, QD
     Route: 041
     Dates: start: 20221217, end: 20221219

REACTIONS (2)
  - Acute kidney injury [Fatal]
  - COVID-19 [Fatal]

NARRATIVE: CASE EVENT DATE: 20221217
